FAERS Safety Report 7783030-1 (Version None)
Quarter: 2011Q3

REPORT INFORMATION
  Report Type: 
  Country: None (occurrence: None)
  Receive Date: 20110927
  Receipt Date: 20110927
  Transmission Date: 20111222
  Serious: No
  Sender: FDA-Public Use
  Company Number: None

PATIENT
  Sex: Female
  Weight: 72.3 kg

DRUGS (1)
  1. ERBITUX [Suspect]
     Dosage: 476 MG

REACTIONS (2)
  - SEPSIS [None]
  - CEREBROVASCULAR ACCIDENT [None]
